FAERS Safety Report 21562043 (Version 1)
Quarter: 2022Q4

REPORT INFORMATION
  Report Type: Spontaneous
  Country: US (occurrence: None)
  Receive Date: 20221106
  Receipt Date: 20221106
  Transmission Date: 20230112
  Serious: Yes (Disabling, Other)
  Sender: FDA-Public Use
  Company Number: None

PATIENT
  Age: 76 Year
  Sex: Male
  Weight: 78.75 kg

DRUGS (9)
  1. ROPINIROLE [Suspect]
     Active Substance: ROPINIROLE
     Indication: Restless legs syndrome
     Dosage: FREQUENCY : AT BEDTIME;?
     Route: 048
  2. ROPINIROLE [Concomitant]
     Active Substance: ROPINIROLE
  3. HYDROMORPHONE [Concomitant]
     Active Substance: HYDROMORPHONE
  4. VALIUM [Concomitant]
     Active Substance: DIAZEPAM
  5. PREDNISONE [Concomitant]
     Active Substance: PREDNISONE
  6. ASPIRIN [Concomitant]
     Active Substance: ASPIRIN
  7. ADVIL [Concomitant]
     Active Substance: IBUPROFEN
  8. MAGNESIUM GLYCINATE [Concomitant]
     Active Substance: MAGNESIUM GLYCINATE
  9. MATRICARIA RECUTITA [Concomitant]
     Active Substance: MATRICARIA RECUTITA

REACTIONS (6)
  - Insomnia [None]
  - Dyskinesia [None]
  - Asthenia [None]
  - Disturbance in attention [None]
  - Intrusive thoughts [None]
  - Withdrawal syndrome [None]

NARRATIVE: CASE EVENT DATE: 20221019
